FAERS Safety Report 4588102-0 (Version None)
Quarter: 2005Q1

REPORT INFORMATION
  Report Type: 
  Country: None (occurrence: None)
  Receive Date: 20050216
  Receipt Date: 20050202
  Transmission Date: 20050727
  Serious: Yes (Death, Other)
  Sender: FDA-Public Use
  Company Number: JP_050205806

PATIENT
  Age: 12 Year
  Sex: Male
  Weight: 55 kg

DRUGS (5)
  1. ONCOVIN [Suspect]
     Indication: ABDOMINAL NEOPLASM
     Dosage: 2 MG OTHER
     Dates: start: 20030507, end: 20030714
  2. PINORUBIN    (PIRABURICIN) [Concomitant]
  3. COSMEGEN [Concomitant]
  4. CYCLOPHOSPHAMIDE [Concomitant]
  5. IFOMIDE  (IFOSFAMIDE) [Concomitant]

REACTIONS (10)
  - ABSCESS [None]
  - BONE MARROW DEPRESSION [None]
  - DIAPHRAGMATIC DISORDER [None]
  - DRUG INEFFECTIVE [None]
  - LUNG ABSCESS [None]
  - MULTI-ORGAN FAILURE [None]
  - PSOAS ABSCESS [None]
  - PULMONARY CONGESTION [None]
  - SEPSIS [None]
  - SPLENOMEGALY [None]
